FAERS Safety Report 14167148 (Version 1)
Quarter: 2017Q4

REPORT INFORMATION
  Report Type: Spontaneous
  Country: CN (occurrence: CN)
  Receive Date: 20171108
  Receipt Date: 20171108
  Transmission Date: 20180321
  Serious: Yes (Hospitalization, Other)
  Sender: FDA-Public Use
  Company Number: CN-SUN PHARMACEUTICAL INDUSTRIES LTD-2016RR-120485

PATIENT
  Age: 9 Year
  Sex: Male
  Weight: 20 kg

DRUGS (12)
  1. CALCIUM FOLINAT [Concomitant]
     Active Substance: LEUCOVORIN CALCIUM
     Indication: PRODUCT USED FOR UNKNOWN INDICATION
     Dosage: 12 MG, QID
     Route: 041
  2. OCTREOTIDE. [Concomitant]
     Active Substance: OCTREOTIDE
     Indication: PRODUCT USED FOR UNKNOWN INDICATION
     Dosage: 0.1 MG, UNK
     Route: 058
  3. CALCIUM FOLINAT [Concomitant]
     Active Substance: LEUCOVORIN CALCIUM
     Dosage: 65 MG, UNK
     Route: 065
  4. METHOTREXATE. [Suspect]
     Active Substance: METHOTREXATE
     Indication: ACUTE LYMPHOCYTIC LEUKAEMIA
     Dosage: 2.45 G, UNK
     Route: 041
  5. CALCIUM FOLINAT [Concomitant]
     Active Substance: LEUCOVORIN CALCIUM
     Dosage: 26 MG, UNK
     Route: 065
  6. MERCAPTOPURINE. [Concomitant]
     Active Substance: MERCAPTOPURINE
     Indication: ACUTE LYMPHOCYTIC LEUKAEMIA
     Dosage: UNK
     Route: 048
  7. OMEPRAZOLE. [Interacting]
     Active Substance: OMEPRAZOLE
     Dosage: 16 MG, BID, ON CHEMOTHERAPY DAY DISCONTINUED
     Route: 041
  8. GLUTATHIONE (GSH) [Concomitant]
     Indication: PRODUCT USED FOR UNKNOWN INDICATION
     Dosage: 0.1 G, IV DRIP FOR 2 DAYS
     Route: 041
  9. OMEPRAZOLE. [Interacting]
     Active Substance: OMEPRAZOLE
     Indication: PRODUCT USED FOR UNKNOWN INDICATION
     Dosage: 16 MG, BID, ON CHEMOTHERAPY DAY DISCONTINUED
     Route: 041
  10. CALCIUM FOLINAT [Concomitant]
     Active Substance: LEUCOVORIN CALCIUM
     Dosage: 288 MG, QID
     Route: 041
  11. METHOTREXATE. [Interacting]
     Active Substance: METHOTREXATE
     Dosage: 2.61 G, UNK
     Route: 041
  12. SODIUM BICARBONATE. [Concomitant]
     Active Substance: SODIUM BICARBONATE
     Indication: PRODUCT USED FOR UNKNOWN INDICATION
     Dosage: 100 ML, UNK
     Route: 065

REACTIONS (3)
  - Drug interaction [Unknown]
  - Drug clearance decreased [Unknown]
  - Drug level increased [Unknown]
